FAERS Safety Report 4428073-0 (Version None)
Quarter: 2004Q3

REPORT INFORMATION
  Report Type: 
  Country: None (occurrence: None)
  Receive Date: 20040813
  Receipt Date: 20040729
  Transmission Date: 20050211
  Serious: Yes (Hospitalization)
  Sender: FDA-Public Use
  Company Number: 04P-163-0268178-00

PATIENT
  Age: 70 Year
  Sex: Female
  Weight: 77.1115 kg

DRUGS (6)
  1. HUMIRA [Suspect]
     Indication: RHEUMATOID ARTHRITIS
     Dosage: 40 MG, 1 IN 2 WK, SUBCUTANEOUS
     Route: 058
     Dates: start: 20031201, end: 20040201
  2. BENAZEPRIL HCL [Concomitant]
  3. FUROSEMIDE [Concomitant]
  4. ALPRAZOLAM [Concomitant]
  5. PROPACET 100 [Concomitant]
  6. PREDNISONE [Concomitant]

REACTIONS (4)
  - CHRONIC SINUSITIS [None]
  - TOOTH ABSCESS [None]
  - TOOTH FRACTURE [None]
  - WHITE BLOOD CELL COUNT INCREASED [None]
